FAERS Safety Report 9116784 (Version 1)
Quarter: 2013Q1

REPORT INFORMATION
  Report Type: Spontaneous
  Country: US (occurrence: US)
  Receive Date: 20130225
  Receipt Date: 20130225
  Transmission Date: 20140127
  Serious: Yes (Hospitalization, Other)
  Sender: FDA-Public Use
  Company Number: US-BAYER-2013-020358

PATIENT
  Age: 58 Year
  Sex: Female

DRUGS (16)
  1. BAYER GENUINE ASPIRIN ORIGINAL STRENGTH [Suspect]
  2. LANTUS [Suspect]
     Indication: DIABETES MELLITUS
     Dosage: DAILY DOSE 1 DF
  3. NOVOLIN R [Suspect]
     Indication: DIABETES MELLITUS
     Dosage: DAILY DOSE 1 DF
  4. PLAVIX [Suspect]
     Dosage: DAILY DOSE 75 MG
     Dates: end: 20120204
  5. EZETIMIBE [Concomitant]
  6. TRIMETAZIDINE [Concomitant]
  7. RANOLAZINE HYDROCHLORIDE [Concomitant]
  8. IVABRADINE [Concomitant]
  9. ADENOSINE DIPHOSPHATE [Concomitant]
  10. BETA BLOCKING AGENTS [Concomitant]
  11. STATIN [Concomitant]
  12. ANGIOTENSIN II ANTAGONISTS [Concomitant]
  13. DIURETICS [Concomitant]
  14. ANGIOTENSIN II [Concomitant]
  15. UNKNOWN [Concomitant]
  16. UNKNOWN [Concomitant]

REACTIONS (8)
  - Dysfunctional uterine bleeding [None]
  - Coagulopathy [None]
  - Presyncope [None]
  - Dizziness [None]
  - Dizziness [None]
  - Asthenia [None]
  - Nausea [None]
  - Hypoglycaemia [None]
